FAERS Safety Report 10074590 (Version 1)
Quarter: 2014Q2

REPORT INFORMATION
  Report Type: Spontaneous
  Country: US (occurrence: US)
  Receive Date: 20140411
  Receipt Date: 20140411
  Transmission Date: 20141212
  Serious: No
  Sender: FDA-Public Use
  Company Number: US-GILEAD-2014-0099099

PATIENT
  Sex: Female

DRUGS (2)
  1. SOVALDI [Suspect]
     Indication: PRODUCT USED FOR UNKNOWN INDICATION
     Dosage: 400 MG, UNK
     Route: 065
     Dates: start: 2014
  2. RIBAVIRIN [Concomitant]
     Dosage: 400 MG AM + 600 MG PM
     Dates: start: 2014

REACTIONS (4)
  - Vision blurred [Unknown]
  - Headache [Unknown]
  - Fatigue [Unknown]
  - Insomnia [Unknown]
